FAERS Safety Report 4667522-X (Version None)
Quarter: 2005Q2

REPORT INFORMATION
  Report Type: 
  Country: None (occurrence: None)
  Receive Date: 20050519
  Receipt Date: 20050519
  Transmission Date: 20051028
  Serious: No
  Sender: FDA-Public Use
  Company Number: None

PATIENT
  Age: 31 Year
  Sex: Male
  Weight: 77.1115 kg

DRUGS (9)
  1. FERRLECIT [Suspect]
     Indication: IRON DEFICIENCY ANAEMIA
     Dosage: 500MG   WEEKLY   INTRAVENOU
     Route: 042
     Dates: start: 20040315, end: 20040315
  2. LASIX [Concomitant]
  3. NEPHROCAPS [Concomitant]
  4. LISINOPRIL [Concomitant]
  5. ACCUTANE [Concomitant]
  6. TOPROL-XL [Concomitant]
  7. ROCALTROL [Concomitant]
  8. REGULAR INSULIN [Concomitant]
  9. NPH INSULIN [Concomitant]

REACTIONS (3)
  - CHEST PAIN [None]
  - DYSPNOEA [None]
  - HEADACHE [None]
